FAERS Safety Report 24140068 (Version 2)
Quarter: 2024Q3

REPORT INFORMATION
  Report Type: Spontaneous
  Country: US (occurrence: US)
  Receive Date: 20240726
  Receipt Date: 20240806
  Transmission Date: 20241016
  Serious: No
  Sender: BRISTOL MYERS SQUIBB
  Company Number: US-BRISTOL-MYERS SQUIBB COMPANY-2024-118120

PATIENT
  Age: 34 Year
  Sex: Female

DRUGS (1)
  1. ZEPOSIA [Suspect]
     Active Substance: OZANIMOD HYDROCHLORIDE
     Indication: Multiple sclerosis
     Route: 048
     Dates: start: 202407

REACTIONS (9)
  - Pain [Unknown]
  - Affective disorder [Unknown]
  - Gait disturbance [Unknown]
  - Movement disorder [Unknown]
  - Sleep disorder [Unknown]
  - General physical health deterioration [Unknown]
  - Hypoaesthesia [Unknown]
  - Paraesthesia [Unknown]
  - Multiple sclerosis relapse [Unknown]
